FAERS Safety Report 14447856 (Version 6)
Quarter: 2018Q3

REPORT INFORMATION
  Report Type: Spontaneous
  Country: FR (occurrence: FR)
  Receive Date: 20180126
  Receipt Date: 20180702
  Transmission Date: 20181010
  Serious: Yes (Life-Threatening, Hospitalization, Other)
  Sender: FDA-Public Use
  Company Number: FR-SA-2018SA014262

PATIENT
  Age: 62 Year
  Sex: Male

DRUGS (27)
  1. PARACETAMOL [Suspect]
     Active Substance: ACETAMINOPHEN
     Dosage: UNK UNK,UNK
  2. NORDAZEPAM [Concomitant]
     Active Substance: NORDAZEPAM
  3. VERAPAMIL HYDROCHLORIDE. [Suspect]
     Active Substance: VERAPAMIL HYDROCHLORIDE
     Indication: HYPERTENSION
     Dosage: UNK UNK,UNK
  4. AMITRIPTYLINE HYDROCHLORIDE. [Suspect]
     Active Substance: AMITRIPTYLINE HYDROCHLORIDE
     Dosage: UNK UNK,UNK
  5. VENLAFAXINE HYDROCHLORIDE. [Suspect]
     Active Substance: VENLAFAXINE HYDROCHLORIDE
     Dosage: UNK UNK,UNK
  6. TAZOCILLIN [Concomitant]
     Active Substance: PIPERACILLIN SODIUM\TAZOBACTAM SODIUM
  7. OXAZEPAM. [Suspect]
     Active Substance: OXAZEPAM
     Dosage: UNK UNK,UNK
  8. HYDROCHLORIC ACID [Suspect]
     Active Substance: HYDROCHLORIC ACID
     Dosage: UNK UNK,UNK
  9. MIDAZOLAM [Suspect]
     Active Substance: MIDAZOLAM HYDROCHLORIDE
     Indication: SEDATION
     Dosage: UNK UNK,UNK
  10. ALPRAZOLAM. [Suspect]
     Active Substance: ALPRAZOLAM
     Dosage: UNK UNK,UNK
  11. HALOPERIDOL. [Suspect]
     Active Substance: HALOPERIDOL
     Dosage: UNK UNK,UNK
  12. AMIKACIN. [Concomitant]
     Active Substance: AMIKACIN
  13. PANTOPRAZOLE [Suspect]
     Active Substance: PANTOPRAZOLE
     Dosage: UNK UNK,UNK
  14. CLONAZEPAM. [Suspect]
     Active Substance: CLONAZEPAM
     Dosage: UNK UNK,UNK
  15. BROMAZEPAM [Suspect]
     Active Substance: BROMAZEPAM
     Dosage: UNK UNK,UNK
  16. SUFENTANIL [Suspect]
     Active Substance: SUFENTANIL
     Dosage: UNK UNK,UNK
  17. NORDAZEPAM [Suspect]
     Active Substance: NORDAZEPAM
     Dosage: UNK UNK,UNK
  18. CISATRACURIUM BESILATE [Suspect]
     Active Substance: CISATRACURIUM BESYLATE
     Dosage: UNK UNK,UNK
  19. VANCOMYCIN [Concomitant]
     Active Substance: VANCOMYCIN
  20. HYDROXYZINE [Suspect]
     Active Substance: HYDROXYZINE HYDROCHLORIDE
     Dosage: 1 DF,HS
  21. CETIRIZINE HYDROCHLORIDE. [Suspect]
     Active Substance: CETIRIZINE HYDROCHLORIDE
     Dosage: UNK UNK,UNK
  22. ZOLPIDEM TARTRATE. [Suspect]
     Active Substance: ZOLPIDEM TARTRATE
     Indication: INSOMNIA
     Dosage: UNK UNK,UNK
  23. PREDNISOLONE. [Suspect]
     Active Substance: PREDNISOLONE
     Dosage: UNK UNK,UNK
  24. URAPIDIL [Suspect]
     Active Substance: URAPIDIL
     Dosage: UNK UNK,UNK
  25. CYAMEMAZINE [Suspect]
     Active Substance: CYAMEMAZINE
     Indication: AGITATION
     Dosage: UNK UNK,UNK
  26. HEPARIN [Suspect]
     Active Substance: HEPARIN SODIUM
     Dosage: UNK UNK,UNK
  27. NORADRENALINE [NOREPINEPHRINE] [Concomitant]

REACTIONS (16)
  - Tachycardia [Recovering/Resolving]
  - Lung disorder [Recovering/Resolving]
  - Weight fluctuation [Unknown]
  - Coma [Recovered/Resolved]
  - Nervous system disorder [Recovered/Resolved]
  - Toxicity to various agents [Recovering/Resolving]
  - Physical assault [Unknown]
  - Disturbance in attention [Recovering/Resolving]
  - Hyperthermia [Recovering/Resolving]
  - Septic shock [Recovering/Resolving]
  - Coma [Recovering/Resolving]
  - Drug diversion [Unknown]
  - Victim of crime [Unknown]
  - Acute respiratory distress syndrome [Recovering/Resolving]
  - Altered state of consciousness [Recovering/Resolving]
  - Overdose [Unknown]
